FAERS Safety Report 9034142 (Version 1)
Quarter: 2013Q1

REPORT INFORMATION
  Report Type: Spontaneous
  Country: US (occurrence: None)
  Receive Date: 20130116
  Receipt Date: 20130116
  Transmission Date: 20140127
  Serious: Yes (Other)
  Sender: FDA-Public Use
  Company Number: None

PATIENT
  Age: 30 Year
  Sex: Male
  Weight: 63.5 kg

DRUGS (1)
  1. GRIFULVIN V [Suspect]
     Route: 048
     Dates: start: 20120118, end: 20120914

REACTIONS (3)
  - Depression [None]
  - Irritable bowel syndrome [None]
  - Thinking abnormal [None]
